FAERS Safety Report 15172056 (Version 2)
Quarter: 2018Q3

REPORT INFORMATION
  Report Type: Spontaneous
  Country: US (occurrence: US)
  Receive Date: 20180720
  Receipt Date: 20180816
  Transmission Date: 20181010
  Serious: Yes (Other)
  Sender: FDA-Public Use
  Company Number: US-ALIMERA SCIENCES LIMITED-US-IL-2018-004101

PATIENT

DRUGS (1)
  1. ILUVIEN [Suspect]
     Active Substance: FLUOCINOLONE ACETONIDE
     Indication: PRODUCT USED FOR UNKNOWN INDICATION
     Dosage: 0.25 ?G, QD, UNKNOWN EYE
     Route: 031

REACTIONS (3)
  - Medical device removal [Recovered/Resolved]
  - Eye operation [Recovered/Resolved]
  - Vitreous haemorrhage [Recovered/Resolved]
